FAERS Safety Report 18433939 (Version 1)
Quarter: 2020Q4

REPORT INFORMATION
  Report Type: Spontaneous
  Country: ES (occurrence: ES)
  Receive Date: 20201028
  Receipt Date: 20201028
  Transmission Date: 20210114
  Serious: Yes (Hospitalization, Other)
  Sender: FDA-Public Use
  Company Number: ES-INTERCEPT-PM2020002120

PATIENT
  Sex: Female

DRUGS (5)
  1. OCALIVA [Suspect]
     Active Substance: OBETICHOLIC ACID
     Indication: PRIMARY BILIARY CHOLANGITIS
     Dosage: 5 MG, QD
     Route: 048
     Dates: start: 201806
  2. UDCA [Concomitant]
     Active Substance: URSODIOL
  3. OCALIVA [Suspect]
     Active Substance: OBETICHOLIC ACID
     Dosage: 10 MG, QD
     Route: 048
  4. OCALIVA [Suspect]
     Active Substance: OBETICHOLIC ACID
     Dosage: 5 MG, QD
     Route: 048
     Dates: start: 201903, end: 201910
  5. FENOFIBRATE. [Concomitant]
     Active Substance: FENOFIBRATE

REACTIONS (4)
  - Dementia [Unknown]
  - Myocardial infarction [Recovered/Resolved]
  - Treatment noncompliance [Unknown]
  - Pruritus [Unknown]

NARRATIVE: CASE EVENT DATE: 2019
